FAERS Safety Report 9398424 (Version 1)
Quarter: 2013Q3

REPORT INFORMATION
  Report Type: Spontaneous
  Country: US (occurrence: US)
  Receive Date: 20130712
  Receipt Date: 20130712
  Transmission Date: 20140515
  Serious: No
  Sender: FDA-Public Use
  Company Number: US-GLAXOSMITHKLINE-A1019455A

PATIENT
  Age: 85 Year
  Sex: Female

DRUGS (5)
  1. FLOVENT [Suspect]
     Indication: PRODUCT USED FOR UNKNOWN INDICATION
     Dosage: 1SPR PER DAY
     Route: 055
     Dates: start: 201303
  2. PRO-AIR [Concomitant]
  3. XANAX [Concomitant]
  4. TYLENOL #3 [Concomitant]
  5. URSODIOL [Concomitant]

REACTIONS (3)
  - Drug ineffective [Not Recovered/Not Resolved]
  - Underdose [Unknown]
  - Dyspnoea [Unknown]
